FAERS Safety Report 6838817-6 (Version None)
Quarter: 2010Q3

REPORT INFORMATION
  Report Type: 
  Country: None (occurrence: None)
  Receive Date: 20100709
  Receipt Date: 20100623
  Transmission Date: 20110219
  Serious: Yes (Death)
  Sender: FDA-Public Use
  Company Number: 1000014405

PATIENT
  Age: 59 Year
  Sex: Male

DRUGS (6)
  1. ESCITALOPRAM [Suspect]
     Indication: DEPRESSION
     Dosage: 10 MG (10 MG, 1 IN 1 D), 15 MG, 1 IN 1 D)
     Dates: start: 20091101, end: 20100101
  2. ESCITALOPRAM [Suspect]
     Indication: DEPRESSION
     Dosage: 10 MG (10 MG, 1 IN 1 D), 15 MG, 1 IN 1 D)
     Dates: start: 20100101
  3. ADIRO [Concomitant]
  4. ENALAPRIL MALEATE [Concomitant]
  5. SOMNOVIT [Concomitant]
  6. TRANKIMAZIN [Concomitant]

REACTIONS (8)
  - COMPLETED SUICIDE [None]
  - DECREASED APPETITE [None]
  - DIZZINESS [None]
  - ERECTILE DYSFUNCTION [None]
  - FUMBLING [None]
  - INAPPROPRIATE AFFECT [None]
  - INSOMNIA [None]
  - NEGATIVE THOUGHTS [None]
